FAERS Safety Report 8014044-4 (Version None)
Quarter: 2011Q4

REPORT INFORMATION
  Report Type: 
  Country: None (occurrence: None)
  Receive Date: 20111229
  Receipt Date: 20111219
  Transmission Date: 20120403
  Serious: Yes (Death, Other)
  Sender: FDA-Public Use
  Company Number: GB-ROCHE-1008247

PATIENT
  Age: 77 Year
  Sex: Male
  Weight: 78.4 kg

DRUGS (20)
  1. NICORANDIL [Concomitant]
  2. ADIZEM XL [Concomitant]
  3. ASPIRIN [Concomitant]
  4. GLYCERYL TRINITRATE [Concomitant]
     Route: 060
  5. ISOSORBIDE MONONITRATE [Concomitant]
  6. ALENDRONIC ACID [Concomitant]
  7. CALCICHEW D3 [Concomitant]
  8. FINASTERIDE [Concomitant]
  9. RITUXIMAB [Suspect]
     Indication: RHEUMATOID ARTHRITIS
     Route: 042
     Dates: start: 20110908
  10. PREDNISOLONE [Concomitant]
  11. TAMSULOSIN HYDROCHLORIDE [Concomitant]
  12. FUROSEMIDE [Concomitant]
  13. LANSOPRAZOLE [Concomitant]
  14. RAMIPRIL [Concomitant]
  15. SIMVASTATIN [Concomitant]
  16. ZAPAIN [Concomitant]
  17. DESMOPRESSIN ACETATE [Concomitant]
  18. ATENOLOL [Concomitant]
  19. RITUXIMAB [Suspect]
     Route: 042
     Dates: start: 20110825
  20. NITRAZEPAM [Concomitant]

REACTIONS (14)
  - CONDITION AGGRAVATED [None]
  - CREPITATIONS [None]
  - EXERCISE TOLERANCE DECREASED [None]
  - RECTAL HAEMORRHAGE [None]
  - BRONCHOPNEUMONIA [None]
  - DYSPNOEA [None]
  - DIARRHOEA [None]
  - FLUID OVERLOAD [None]
  - OEDEMA PERIPHERAL [None]
  - WHITE BLOOD CELL COUNT INCREASED [None]
  - HYPOTENSION [None]
  - BLOOD SODIUM DECREASED [None]
  - TACHYPNOEA [None]
  - PULMONARY FIBROSIS [None]
